FAERS Safety Report 10187215 (Version 2)
Quarter: 2014Q2

REPORT INFORMATION
  Report Type: Report from Study
  Country: GB (occurrence: None)
  Receive Date: 20140520
  Receipt Date: 20140603
  Transmission Date: 20141212
  Serious: Yes (Death, Hospitalization)
  Sender: FDA-Public Use
  Company Number: AMAG201400136

PATIENT
  Age: 79 Year
  Sex: Male

DRUGS (2)
  1. RIENSO (FERUMOXYTOL) INJECTION [Suspect]
     Indication: IMAGING PROCEDURE
     Dosage: SINGLE
     Route: 042
     Dates: start: 20130319, end: 20130319
  2. BUSCOPAN (HYOSCINE BUTYLBROMIDE) [Concomitant]

REACTIONS (2)
  - Pneumonia aspiration [None]
  - Concomitant disease progression [None]
